FAERS Safety Report 7053477-X (Version None)
Quarter: 2010Q4

REPORT INFORMATION
  Report Type: 
  Country: None (occurrence: None)
  Receive Date: 20101020
  Receipt Date: 20101011
  Transmission Date: 20110411
  Serious: No
  Sender: FDA-Public Use
  Company Number: US-PFIZER INC-2010129313

PATIENT
  Sex: Male

DRUGS (4)
  1. CHANTIX [Suspect]
  2. GABAPENTIN [Suspect]
  3. METFORMIN HCL [Suspect]
  4. LYRICA [Suspect]

REACTIONS (8)
  - ABDOMINAL DISCOMFORT [None]
  - ABNORMAL DREAMS [None]
  - BALANCE DISORDER [None]
  - FEELING ABNORMAL [None]
  - HYPERSOMNIA [None]
  - LETHARGY [None]
  - OROPHARYNGEAL PAIN [None]
  - THINKING ABNORMAL [None]
